FAERS Safety Report 7749364-1 (Version None)
Quarter: 2011Q3

REPORT INFORMATION
  Report Type: 
  Country: None (occurrence: None)
  Receive Date: 20110914
  Receipt Date: 20110902
  Transmission Date: 20111222
  Serious: Yes (Death)
  Sender: FDA-Public Use
  Company Number: US-CELGENEUS-163-21880-11080976

PATIENT
  Sex: Male

DRUGS (5)
  1. TRIPHROCAPS [Concomitant]
     Route: 065
  2. REVLIMID [Suspect]
     Indication: MULTIPLE MYELOMA
     Dosage: 10 MILLIGRAM
     Route: 048
     Dates: start: 20110716, end: 20110801
  3. REVLIMID [Suspect]
     Dosage: 5 MILLIGRAM
     Route: 048
     Dates: start: 20110801, end: 20110801
  4. ALLOPURINOL [Concomitant]
     Route: 065
  5. RENAGEL [Concomitant]
     Route: 065

REACTIONS (1)
  - RENAL FAILURE [None]
